FAERS Safety Report 6347468-1 (Version None)
Quarter: 2009Q3

REPORT INFORMATION
  Report Type: 
  Country: None (occurrence: None)
  Receive Date: 20090910
  Receipt Date: 20090812
  Transmission Date: 20100115
  Serious: No
  Sender: FDA-Public Use
  Company Number: US-BAYER-200913454BCC

PATIENT
  Age: 43 Year
  Sex: Female
  Weight: 48 kg

DRUGS (6)
  1. ALEVE [Suspect]
     Indication: BACK PAIN
     Dosage: TOTAL DAILY DOSE: 220 MG  UNIT DOSE: 220 MG
     Route: 048
     Dates: start: 20090811
  2. FLUOXETINE [Concomitant]
     Dosage: TOTAL DAILY DOSE: 40 MG  UNIT DOSE: 20 MG
     Route: 065
  3. BUPROPION HCL [Concomitant]
     Dosage: TOTAL DAILY DOSE: 200 MG  UNIT DOSE: 100 MG
     Route: 065
  4. OCELLA [Concomitant]
     Route: 065
  5. CLONAZEPAM [Concomitant]
     Dosage: HALF TABLET IN THE MORNING AND 3 AT NIGHT
     Route: 065
  6. ZYRTEC [Concomitant]
     Route: 065

REACTIONS (1)
  - BACK PAIN [None]
